FAERS Safety Report 5505762-8 (Version None)
Quarter: 2007Q4

REPORT INFORMATION
  Report Type: 
  Country: None (occurrence: None)
  Receive Date: 20071102
  Receipt Date: 20071022
  Transmission Date: 20080405
  Serious: Yes (Other)
  Sender: FDA-Public Use
  Company Number: US-PFIZER INC-2007089226

PATIENT
  Age: 53 Year
  Sex: Female
  Weight: 47.2 kg

DRUGS (1)
  1. XANAX [Suspect]

REACTIONS (1)
  - DRUG ABUSER [None]
